FAERS Safety Report 4268622-9 (Version None)
Quarter: 2004Q1

REPORT INFORMATION
  Report Type: 
  Country: None (occurrence: None)
  Receive Date: 20040108
  Receipt Date: 20031223
  Transmission Date: 20041129
  Serious: Yes (Hospitalization)
  Sender: FDA-Public Use
  Company Number: MINM040126

PATIENT
  Sex: Female
  Weight: 69 kg

DRUGS (3)
  1. ARESTIN [Suspect]
     Indication: PERIODONTITIS
     Dosage: 1 MG SUBGINGIVAL X 20
     Dates: start: 20031211
  2. DURBIS RETARD [Concomitant]
  3. LANACRIST [Concomitant]

REACTIONS (1)
  - CARDIAC FIBRILLATION [None]
